FAERS Safety Report 20691307 (Version 1)
Quarter: 2022Q2

REPORT INFORMATION
  Report Type: Report from Study
  Country: JP (occurrence: None)
  Receive Date: 20220408
  Receipt Date: 20220408
  Transmission Date: 20220720
  Serious: Yes (Other)
  Sender: FDA-Public Use
  Company Number: JP-MDD US Operations-MDD202204-000690

PATIENT
  Age: 58 Year
  Sex: Male
  Weight: 59 kg

DRUGS (11)
  1. APOKYN [Suspect]
     Active Substance: APOMORPHINE HYDROCHLORIDE
     Indication: Parkinson^s disease
     Dosage: 1MG
     Route: 058
     Dates: start: 20120728, end: 20120825
  2. DROXIDOPA [Concomitant]
     Active Substance: DROXIDOPA
     Dosage: NOT PROVIDED
     Dates: start: 20080829
  3. MOSAPRIDE CITRATE [Concomitant]
     Active Substance: MOSAPRIDE CITRATE
     Dosage: NOT PROVIDED
     Dates: start: 20080829
  4. BENSERAZIDE HYDROCHLORIDE\LEVODOPA [Concomitant]
     Active Substance: BENSERAZIDE HYDROCHLORIDE\LEVODOPA
     Dosage: NOT PROVIDED
     Dates: start: 20080829
  5. RIVOTRIL [Concomitant]
     Active Substance: CLONAZEPAM
     Dosage: NOT PROVIDED
     Dates: start: 20090410
  6. GABAPENTIN [Concomitant]
     Active Substance: GABAPENTIN
     Dosage: NOT PROVIDED
     Dates: start: 20090523
  7. REQUIP [Concomitant]
     Active Substance: ROPINIROLE HYDROCHLORIDE
     Dosage: NOT PROVIDED
     Dates: start: 20100327
  8. COMTAN [Concomitant]
     Active Substance: ENTACAPONE
     Dosage: NOT PROVIDED
     Dates: start: 20100731
  9. AMLODIPINE [Concomitant]
     Active Substance: AMLODIPINE BESYLATE
     Dosage: NOT PROVIDED
     Dates: start: 20110927
  10. Aloesenn [Concomitant]
     Dosage: NOT PROVIDED
     Dates: start: 20111015
  11. PLAVIX [Concomitant]
     Active Substance: CLOPIDOGREL BISULFATE
     Dosage: NOT PROVIDED
     Dates: start: 20120413

REACTIONS (5)
  - Respiratory depression [Recovered/Resolved]
  - Pallor [Recovered/Resolved]
  - Cold sweat [Recovered/Resolved]
  - Urticaria [Recovered/Resolved]
  - Somnolence [Recovered/Resolved]

NARRATIVE: CASE EVENT DATE: 20120728
